FAERS Safety Report 6134038-3 (Version None)
Quarter: 2009Q1

REPORT INFORMATION
  Report Type: 
  Country: None (occurrence: None)
  Receive Date: 20090217
  Receipt Date: 20080128
  Transmission Date: 20090719
  Serious: No
  Sender: FDA-Public Use
  Company Number: AEUSA200700236

PATIENT
  Age: 69 Year
  Sex: Male

DRUGS (8)
  1. PROLASTIN [Suspect]
     Indication: ALPHA-1 ANTI-TRYPSIN DEFICIENCY
     Dosage: 5505 MG; 1X; IV
     Route: 042
     Dates: start: 20070919, end: 20071017
  2. CELEBREX [Concomitant]
  3. SINGULAIR [Concomitant]
  4. LISINOPRIL [Concomitant]
  5. ADVAIR HFA [Concomitant]
  6. AMBIEN [Concomitant]
  7. NEXIUM [Concomitant]
  8. ALBUTEROL [Concomitant]

REACTIONS (9)
  - ASTHENIA [None]
  - BACK PAIN [None]
  - CHILLS [None]
  - MYALGIA [None]
  - NAUSEA [None]
  - OCULAR ICTERUS [None]
  - PYREXIA [None]
  - TREMOR [None]
  - YELLOW SKIN [None]
